FAERS Safety Report 23797675 (Version 1)
Quarter: 2024Q2

REPORT INFORMATION
  Report Type: Other
  Country: MX (occurrence: None)
  Receive Date: 20240430
  Receipt Date: 20240430
  Transmission Date: 20240715
  Serious: Yes (Hospitalization, Other)
  Sender: FDA-Public Use
  Company Number: MX-ROCHE-3515409

PATIENT
  Sex: Female
  Weight: 64.5 kg

DRUGS (9)
  1. PERJETA [Suspect]
     Active Substance: PERTUZUMAB
     Indication: Breast cancer
     Route: 042
     Dates: start: 202101
  2. HERCEPTIN [Suspect]
     Active Substance: TRASTUZUMAB
     Indication: Breast cancer
     Route: 042
     Dates: start: 202101
  3. KADCYLA [Suspect]
     Active Substance: ADO-TRASTUZUMAB EMTANSINE
     Indication: Breast cancer
     Route: 042
     Dates: start: 20240301
  4. DOCETAXEL [Concomitant]
     Active Substance: DOCETAXEL\DOCETAXEL ANHYDROUS
     Indication: Breast cancer
     Dosage: DOSE AND FREQUENCY WERE NOT REPORTED. 8 CYCLES
  5. EXEMESTANE [Concomitant]
     Active Substance: EXEMESTANE
     Indication: Breast cancer
     Dosage: TAKE HALF A TABLET EVERY 24 HOURS WITH FOOD.
     Route: 048
     Dates: start: 202101
  6. PANTOPRAZOLE [Concomitant]
     Active Substance: PANTOPRAZOLE
     Dosage: TAKE HALF A TABLET EVERY 24 HOURS WITH FOOD.
     Route: 048
  7. RABEPRAZOLE [Concomitant]
     Active Substance: RABEPRAZOLE
     Dosage: TAKE HALF A TABLET EVERY 24 HOURS WITH FOOD.
     Route: 048
  8. OMEPRAZOLE [Concomitant]
     Active Substance: OMEPRAZOLE
     Dosage: TAKE HALF A TABLET EVERY 24 HOURS WITH FOOD.
     Route: 048
  9. PREDNISONE [Concomitant]
     Active Substance: PREDNISONE
     Dosage: TAKE HALF A TABLET EVERY 24 HOURS WITH FOOD.
     Route: 048

REACTIONS (22)
  - Hepatic cancer recurrent [Unknown]
  - Bone cancer [Unknown]
  - Nervous system disorder [Unknown]
  - Pulmonary fibrosis [Unknown]
  - Seizure [Not Recovered/Not Resolved]
  - Vomiting [Not Recovered/Not Resolved]
  - Dizziness [Not Recovered/Not Resolved]
  - Brain neoplasm [Not Recovered/Not Resolved]
  - Hepatic mass [Unknown]
  - Bone lesion [Unknown]
  - Back pain [Unknown]
  - Sacral pain [Unknown]
  - Lymphoedema [Unknown]
  - Foot deformity [Unknown]
  - Gait disturbance [Unknown]
  - Nausea [Unknown]
  - Vomiting [Unknown]
  - Balance disorder [Unknown]
  - Pleural effusion [Unknown]
  - Uterine leiomyoma calcification [Unknown]
  - Vertebral lesion [Unknown]
  - Mitral valve incompetence [Unknown]

NARRATIVE: CASE EVENT DATE: 20220101
